FAERS Safety Report 8711654 (Version 2)
Quarter: 2013Q1

REPORT INFORMATION
  Report Type: Spontaneous
  Country: IT (occurrence: None)
  Receive Date: 20120723
  Receipt Date: 20121206
  Transmission Date: 20140127
  Serious: Yes (Other)
  Sender: FDA-Public Use
  Company Number: EUS-2012-00478

PATIENT
  Age: 9 Year
  Sex: Female

DRUGS (1)
  1. ASPARAGINASE [Suspect]
     Indication: ACUTE LYMPHOCYTIC LEUKAEMIA
     Dosage: 10,000 U/M2; TOTAL OF 8 ADMINISTRATIONS; IN THE REINDUCTION PHASE, INTRAMUSCULAR
     Route: 030

REACTIONS (2)
  - Blood cholesterol increased [None]
  - Blood triglycerides increased [None]
